FAERS Safety Report 20190405 (Version 3)
Quarter: 2022Q1

REPORT INFORMATION
  Report Type: Spontaneous
  Country: JP (occurrence: JP)
  Receive Date: 20211215
  Receipt Date: 20220213
  Transmission Date: 20220423
  Serious: Yes (Hospitalization, Other)
  Sender: FDA-Public Use
  Company Number: JP-AMGEN-JPNSP2021131435

PATIENT
  Age: 64 Year
  Sex: Female
  Weight: 53 kg

DRUGS (3)
  1. EVENITY [Suspect]
     Active Substance: ROMOSOZUMAB-AQQG
     Indication: Osteoporosis
     Dosage: 210 MILLIGRAM
     Route: 058
     Dates: start: 20201127, end: 20210514
  2. COVID-19 VACCINE NOS [Suspect]
     Active Substance: COVID-19 VACCINE NOS
     Indication: Product used for unknown indication
     Dosage: UNK
     Route: 065
     Dates: start: 20210609
  3. PRAVASTATIN [Concomitant]
     Active Substance: PRAVASTATIN
     Dosage: 10 MILLIGRAM, QD
     Dates: start: 20210501

REACTIONS (3)
  - Lacunar infarction [Recovered/Resolved]
  - Intracranial aneurysm [Unknown]
  - Low density lipoprotein increased [Unknown]

NARRATIVE: CASE EVENT DATE: 20201201
